FAERS Safety Report 12095635 (Version 2)
Quarter: 2017Q3

REPORT INFORMATION
  Report Type: Spontaneous
  Country: US (occurrence: US)
  Receive Date: 20160219
  Receipt Date: 20170920
  Transmission Date: 20171127
  Serious: No
  Sender: FDA-Public Use
  Company Number: US-AUROBINDO-AUR-APL-2015-08885

PATIENT

DRUGS (1)
  1. DEXAMFETAMINE TABLET [Suspect]
     Active Substance: DEXTROAMPHETAMINE
     Indication: PRODUCT USED FOR UNKNOWN INDICATION
     Dosage: 20 MG, UNK
     Route: 065

REACTIONS (4)
  - Attention deficit/hyperactivity disorder [Unknown]
  - Adverse drug reaction [Unknown]
  - Drug ineffective [Unknown]
  - Condition aggravated [Unknown]
